FAERS Safety Report 9852346 (Version 1)
Quarter: 2014Q1

REPORT INFORMATION
  Report Type: Spontaneous
  Country: US (occurrence: None)
  Receive Date: 20140127
  Receipt Date: 20140127
  Transmission Date: 20141002
  Serious: Yes (Other)
  Sender: FDA-Public Use
  Company Number: NL01PV14.35115

PATIENT
  Sex: Male

DRUGS (8)
  1. ZOLPIDEM [Suspect]
     Indication: PRODUCT USED FOR UNKNOWN INDICATION
  2. QUETIAPINE FUMARATE (QUETIAPINE FUMARATE) [Suspect]
     Indication: SCHIZOPHRENIA, PARANOID TYPE
     Route: 067
  3. CLOZAPINE [Suspect]
     Indication: SCHIZOPHRENIA, PARANOID TYPE
  4. RISPERIDONE (RISPERIDONE) [Suspect]
     Indication: SCHIZOPHRENIA, PARANOID TYPE
  5. ZIPRASIDONE [Suspect]
     Indication: SCHIZOPHRENIA, PARANOID TYPE
  6. ARIPIPRAZOLE (ARIPIPRAZOLE) [Suspect]
     Indication: SCHIZOPHRENIA, PARANOID TYPE
  7. OLANZAPINE [Suspect]
     Indication: SCHIZOPHRENIA, PARANOID TYPE
  8. HALOPERIDOL (HALOPERIDOL) (HALOPERIDOL) [Concomitant]

REACTIONS (4)
  - Parkinson^s disease [None]
  - Priapism [None]
  - Drooling [None]
  - Paranoia [None]
